FAERS Safety Report 21283554 (Version 1)
Quarter: 2022Q3

REPORT INFORMATION
  Report Type: Spontaneous
  Country: US (occurrence: None)
  Receive Date: 20220901
  Receipt Date: 20220901
  Transmission Date: 20221027
  Serious: Yes (Hospitalization)
  Sender: FDA-Public Use
  Company Number: None

PATIENT
  Sex: Male
  Weight: 82.5 kg

DRUGS (4)
  1. CISPLATIN [Suspect]
     Active Substance: CISPLATIN
     Dates: end: 20220722
  2. FILGRASTIM [Suspect]
     Active Substance: FILGRASTIM
     Dates: end: 20220802
  3. IFOSFAMIDE [Suspect]
     Active Substance: IFOSFAMIDE
     Dates: end: 20220722
  4. TAXOL [Suspect]
     Active Substance: PACLITAXEL
     Dates: end: 20220718

REACTIONS (6)
  - Dizziness [None]
  - Thrombocytopenia [None]
  - White blood cell count decreased [None]
  - Anaemia [None]
  - Blood creatinine increased [None]
  - Systemic inflammatory response syndrome [None]

NARRATIVE: CASE EVENT DATE: 20220726
